FAERS Safety Report 24083927 (Version 1)
Quarter: 2024Q3

REPORT INFORMATION
  Report Type: Spontaneous
  Country: US (occurrence: US)
  Receive Date: 20240712
  Receipt Date: 20240712
  Transmission Date: 20241017
  Serious: Yes (Hospitalization, Other)
  Sender: Steriscience PTE
  Company Number: US-STERISCIENCE B.V.-2024-ST-000982

PATIENT
  Age: 77 Year
  Sex: Female

DRUGS (6)
  1. MEROPENEM [Suspect]
     Active Substance: MEROPENEM
     Indication: Otitis externa
     Dosage: 10 DAY COURSE
     Route: 065
  2. MEROPENEM [Suspect]
     Active Substance: MEROPENEM
     Dosage: UNK, THERAPY RE-INITIATED
     Route: 065
  3. FLUCONAZOLE [Suspect]
     Active Substance: FLUCONAZOLE
     Indication: Otitis externa
     Dosage: UNK
     Route: 065
  4. PREDNISONE [Concomitant]
     Active Substance: PREDNISONE
     Indication: Adrenocortical steroid therapy
     Dosage: INITIAL DOSE NOT STATED
     Route: 065
  5. PREDNISONE [Concomitant]
     Active Substance: PREDNISONE
     Dosage: DOSE TAPERED
     Route: 065
  6. ISONIAZID [Concomitant]
     Active Substance: ISONIAZID
     Indication: Latent tuberculosis
     Dosage: UNK
     Route: 065

REACTIONS (2)
  - Linear IgA disease [Recovered/Resolved]
  - Drug hypersensitivity [Recovered/Resolved]
